FAERS Safety Report 9967051 (Version 1)
Quarter: 2014Q1

REPORT INFORMATION
  Report Type: Spontaneous
  Country: US (occurrence: US)
  Receive Date: 20140305
  Receipt Date: 20140305
  Transmission Date: 20141002
  Serious: No
  Sender: FDA-Public Use
  Company Number: US-GILEAD-2014-0096078

PATIENT
  Age: 66 Year
  Sex: Male

DRUGS (1)
  1. LETAIRIS [Suspect]
     Indication: PRODUCT USED FOR UNKNOWN INDICATION
     Dosage: 5 MG, QD
     Route: 065
     Dates: start: 20140301

REACTIONS (3)
  - Oxygen saturation decreased [Not Recovered/Not Resolved]
  - Abasia [Not Recovered/Not Resolved]
  - Eye swelling [Recovered/Resolved]
